FAERS Safety Report 8137786-9 (Version None)
Quarter: 2012Q1

REPORT INFORMATION
  Report Type: 
  Country: None (occurrence: None)
  Receive Date: 20120215
  Receipt Date: 20120208
  Transmission Date: 20120608
  Serious: Yes (Hospitalization, Other)
  Sender: FDA-Public Use
  Company Number: US-BAYER-2011-075599

PATIENT
  Age: 22 Year
  Sex: Female
  Weight: 72.562 kg

DRUGS (5)
  1. YASMIN [Suspect]
     Indication: PREMENSTRUAL SYNDROME
  2. YAZ [Suspect]
     Indication: CONTRACEPTION
     Dosage: UNK
     Dates: start: 20050201, end: 20070501
  3. YAZ [Suspect]
     Indication: PREMENSTRUAL SYNDROME
  4. YASMIN [Suspect]
     Indication: CONTRACEPTION
     Dosage: UNK
     Dates: start: 20050201, end: 20070501
  5. INHALERS [Concomitant]
     Dosage: UNK UNK, PRN
     Dates: start: 20050101

REACTIONS (4)
  - PAIN [None]
  - CHOLECYSTECTOMY [None]
  - INJURY [None]
  - CHOLECYSTITIS CHRONIC [None]
